FAERS Safety Report 4359068-3 (Version None)
Quarter: 2004Q2

REPORT INFORMATION
  Report Type: 
  Country: None (occurrence: None)
  Receive Date: 20040517
  Receipt Date: 20040506
  Transmission Date: 20050107
  Serious: Yes (Hospitalization)
  Sender: FDA-Public Use
  Company Number: DE-ROCHE-367052

PATIENT
  Age: 75 Year
  Sex: Female
  Weight: 77 kg

DRUGS (2)
  1. CAPECITABINE [Suspect]
     Dosage: INTERMITTENT THERAPY OF 14 DAYS TREATMENT, FOLLOWED BY 7 DAYS REST. ACTUAL DOSE RECEIVED: 3500 MG
     Route: 048
     Dates: start: 20031127, end: 20040319
  2. TAXOL [Suspect]
     Route: 042
     Dates: start: 20031127

REACTIONS (2)
  - HERPES ZOSTER [None]
  - LEUKOPENIA [None]
